FAERS Safety Report 9554801 (Version 3)
Quarter: 2014Q1

REPORT INFORMATION
  Report Type: Spontaneous
  Country: US (occurrence: US)
  Receive Date: 20130926
  Receipt Date: 20140314
  Transmission Date: 20141002
  Serious: Yes (Other)
  Sender: FDA-Public Use
  Company Number: US-BIOGENIDEC-2013BI041266

PATIENT
  Age: 43 Year
  Sex: Female

DRUGS (1)
  1. AVONEX [Suspect]
     Indication: MULTIPLE SCLEROSIS
     Route: 030
     Dates: start: 20120413, end: 20131220

REACTIONS (5)
  - Convulsion [Recovered/Resolved]
  - Vision blurred [Not Recovered/Not Resolved]
  - Hemiparesis [Unknown]
  - Musculoskeletal stiffness [Not Recovered/Not Resolved]
  - Headache [Unknown]
